FAERS Safety Report 8845175 (Version 1)
Quarter: 2012Q4

REPORT INFORMATION
  Report Type: Spontaneous
  Country: US (occurrence: None)
  Receive Date: 20121016
  Receipt Date: 20121016
  Transmission Date: 20130627
  Serious: Yes (Hospitalization)
  Sender: FDA-Public Use
  Company Number: None

PATIENT
  Age: 75 Year
  Sex: Female
  Weight: 100 kg

DRUGS (2)
  1. COUMADIN [Suspect]
     Indication: AFIB
     Dosage: 5 mg / 7.5mg TWFSU/ MTHS PO
     Route: 048
  2. ASA [Suspect]
     Indication: CORONARY ARTERY DISEASE
     Dosage: 81 caily PO
     Route: 048

REACTIONS (3)
  - Gastrointestinal haemorrhage [None]
  - Blood urea increased [None]
  - Colitis ischaemic [None]
